FAERS Safety Report 15203230 (Version 1)
Quarter: 2018Q3

REPORT INFORMATION
  Report Type: Spontaneous
  Country: US (occurrence: US)
  Receive Date: 20180726
  Receipt Date: 20180726
  Transmission Date: 20181010
  Serious: Yes (Death)
  Sender: FDA-Public Use
  Company Number: US-ELI_LILLY_AND_COMPANY-US201807012025

PATIENT
  Age: 0 Day

DRUGS (3)
  1. HUMALOG [Suspect]
     Active Substance: INSULIN LISPRO
     Dosage: 150 U, 3/W
     Route: 065
     Dates: start: 1991
  2. HUMALOG [Suspect]
     Active Substance: INSULIN LISPRO
     Indication: TYPE 1 DIABETES MELLITUS
     Dosage: UNK UNK, UNKNOWN
     Route: 065
     Dates: start: 1991
  3. INSULINA BEEF/PORK REGULAR [Suspect]
     Active Substance: INSULIN BEEF/PORK
     Indication: TYPE 1 DIABETES MELLITUS
     Dosage: UNK, UNKNOWN
     Route: 065
     Dates: start: 197805

REACTIONS (2)
  - Foetal exposure during pregnancy [Unknown]
  - Stillbirth [Fatal]

NARRATIVE: CASE EVENT DATE: 19920202
